FAERS Safety Report 21566943 (Version 2)
Quarter: 2022Q4

REPORT INFORMATION
  Report Type: Spontaneous
  Country: US (occurrence: US)
  Receive Date: 20221108
  Receipt Date: 20221128
  Transmission Date: 20230113
  Serious: No
  Sender: FDA-Public Use
  Company Number: US-BAYER-2022A155215

PATIENT
  Age: 10 Year
  Sex: Male

DRUGS (3)
  1. KOGENATE FS [Suspect]
     Active Substance: ANTIHEMOPHILIC FACTOR, HUMAN RECOMBINANT
     Dosage: 1375 IU, TIW
     Route: 042
  2. KOGENATE FS [Suspect]
     Active Substance: ANTIHEMOPHILIC FACTOR, HUMAN RECOMBINANT
     Dosage: 1375 IU, PRN
     Route: 042
  3. KOGENATE FS [Suspect]
     Active Substance: ANTIHEMOPHILIC FACTOR, HUMAN RECOMBINANT
     Dosage: UNK, TO RESOLVE ANKLE SWELLING
     Route: 042
     Dates: start: 20221016, end: 20221017

REACTIONS (3)
  - Arthralgia [None]
  - Joint swelling [Recovered/Resolved]
  - Vascular access complication [None]

NARRATIVE: CASE EVENT DATE: 20221016
